FAERS Safety Report 9103127 (Version 1)
Quarter: 2013Q1

REPORT INFORMATION
  Report Type: Spontaneous
  Country: GB (occurrence: GB)
  Receive Date: 20130218
  Receipt Date: 20130218
  Transmission Date: 20140127
  Serious: Yes (Other)
  Sender: FDA-Public Use
  Company Number: GB-ROCHE-1187435

PATIENT
  Age: 60 Year
  Sex: Female
  Weight: 53 kg

DRUGS (7)
  1. MABTHERA [Suspect]
     Indication: SYSTEMIC LUPUS ERYTHEMATOSUS
     Route: 042
     Dates: start: 20110711, end: 20130129
  2. MABTHERA [Suspect]
     Indication: VASCULITIS
  3. ALENDRONIC ACID [Concomitant]
     Route: 048
  4. ALLOPURINOL [Concomitant]
     Route: 048
  5. LOSARTAN [Concomitant]
     Route: 048
  6. TRIMETHOPRIM [Concomitant]
     Route: 048
  7. CALCEOS [Concomitant]
     Route: 048

REACTIONS (3)
  - Transient ischaemic attack [Recovered/Resolved]
  - Hypoaesthesia [Unknown]
  - Flushing [Unknown]
